FAERS Safety Report 18415569 (Version 2)
Quarter: 2020Q4

REPORT INFORMATION
  Report Type: Spontaneous
  Country: US (occurrence: US)
  Receive Date: 20201022
  Receipt Date: 20201102
  Transmission Date: 20210114
  Serious: Yes (Other)
  Sender: FDA-Public Use
  Company Number: NVSC2020US279259

PATIENT
  Age: 29 Year
  Sex: Female

DRUGS (1)
  1. TEGRETOL [Suspect]
     Active Substance: CARBAMAZEPINE
     Indication: EPILEPSY
     Dosage: 200 MG
     Route: 065

REACTIONS (3)
  - Abortion spontaneous [Unknown]
  - Pregnancy on oral contraceptive [Unknown]
  - Maternal exposure during pregnancy [Unknown]
